FAERS Safety Report 16671255 (Version 1)
Quarter: 2019Q3

REPORT INFORMATION
  Report Type: Spontaneous
  Country: FR (occurrence: FR)
  Receive Date: 20190805
  Receipt Date: 20190805
  Transmission Date: 20191004
  Serious: Yes (Other)
  Sender: FDA-Public Use
  Company Number: FR-SUN PHARMACEUTICAL INDUSTRIES LTD-2019RR-216320

PATIENT
  Sex: Male

DRUGS (1)
  1. DESLORATADINE. [Suspect]
     Active Substance: DESLORATADINE
     Indication: ACCIDENTAL EXPOSURE TO PRODUCT BY CHILD
     Dosage: 4.70 MILLIGRAM/KILOGRAM (ACCIDENTALLY INGESTING AN ALLEGED FIFTEEN 5MG TABLETS)
     Route: 048

REACTIONS (4)
  - Incorrect dose administered [Unknown]
  - Somnolence [Unknown]
  - Sinus bradycardia [Unknown]
  - Gastrointestinal pain [Unknown]
